FAERS Safety Report 16499222 (Version 1)
Quarter: 2019Q3

REPORT INFORMATION
  Report Type: Spontaneous
  Country: US (occurrence: US)
  Receive Date: 20190701
  Receipt Date: 20190701
  Transmission Date: 20191004
  Serious: Yes (Other)
  Sender: FDA-Public Use
  Company Number: US-AMGEN-USASP2019102083

PATIENT
  Age: 83 Year
  Sex: Female

DRUGS (2)
  1. PROLIA [Suspect]
     Active Substance: DENOSUMAB
     Indication: OSTEOPOROSIS POSTMENOPAUSAL
     Dosage: 60 MILLIGRAM, Q6MO
     Route: 065
     Dates: start: 201506
  2. GLEEVEC [Concomitant]
     Active Substance: IMATINIB MESYLATE
     Indication: MYELOID LEUKAEMIA
     Dosage: UNK

REACTIONS (2)
  - Osteonecrosis of jaw [Unknown]
  - Tooth extraction [Unknown]

NARRATIVE: CASE EVENT DATE: 201712
